FAERS Safety Report 22773427 (Version 3)
Quarter: 2024Q4

REPORT INFORMATION
  Report Type: Spontaneous
  Country: US (occurrence: US)
  Receive Date: 20230801
  Receipt Date: 20241010
  Transmission Date: 20250114
  Serious: Yes (Other)
  Sender: PFIZER
  Company Number: US-PFIZER INC-PV202300029444

PATIENT
  Age: 72 Year
  Sex: Female
  Weight: 69.932 kg

DRUGS (9)
  1. IBRANCE [Suspect]
     Active Substance: PALBOCICLIB
     Indication: Breast cancer female
     Dosage: 125 MG
     Dates: start: 20220905
  2. IBRANCE [Suspect]
     Active Substance: PALBOCICLIB
     Indication: Breast cancer female
     Dosage: 100 MG
     Dates: start: 20230630
  3. IBRANCE [Suspect]
     Active Substance: PALBOCICLIB
     Indication: Metastases to skin
  4. IBRANCE [Suspect]
     Active Substance: PALBOCICLIB
     Indication: Aromatase inhibition therapy
  5. LETROZOLE [Concomitant]
     Active Substance: LETROZOLE
     Dosage: UNK
     Dates: start: 20220512
  6. LORAZEPAM [Concomitant]
     Active Substance: LORAZEPAM
     Indication: Anxiety
     Dosage: 0.5-1 TAB ORAL DAILY AS NEEDED FOR ANXIETY OR SLEEP
     Route: 048
     Dates: start: 20241002
  7. LORAZEPAM [Concomitant]
     Active Substance: LORAZEPAM
     Indication: Somnolence
  8. LOMOTIL [Concomitant]
     Active Substance: ATROPINE SULFATE\DIPHENOXYLATE HYDROCHLORIDE
     Indication: Diarrhoea
     Dosage: (2.5-0.025 MG) 1 TAB ORAL THREE TIMES DAILY AS NEEDED FOR DIARRHEA
     Route: 048
     Dates: start: 20240507
  9. ATROPINE\DIPHENOXYLATE [Concomitant]
     Active Substance: ATROPINE\DIPHENOXYLATE
     Indication: Diarrhoea
     Dosage: [2.5-0,025 MG TABLET] 1 TAB  ORAL THREE TIMES DAILY AS NEEDED FOR DIARRHEA
     Route: 048
     Dates: start: 20240507

REACTIONS (5)
  - Sepsis [Recovered/Resolved]
  - Off label use [Unknown]
  - Diarrhoea [Recovering/Resolving]
  - Anxiety [Unknown]
  - Lymphoedema [Unknown]
